FAERS Safety Report 26102444 (Version 1)
Quarter: 2025Q4

REPORT INFORMATION
  Report Type: Spontaneous
  Country: GB (occurrence: GB)
  Receive Date: 20251128
  Receipt Date: 20251128
  Transmission Date: 20260118
  Serious: Yes (Hospitalization, Other)
  Sender: AMGEN
  Company Number: GB-AMGEN-GBRSP2024192455

PATIENT
  Age: 54 Year
  Sex: Female
  Weight: 71 kg

DRUGS (16)
  1. ADALIMUMAB [Suspect]
     Active Substance: ADALIMUMAB
     Indication: Product used for unknown indication
     Dosage: 98 MILLIGRAM
     Route: 058
  2. ADALIMUMAB [Suspect]
     Active Substance: ADALIMUMAB
     Dosage: UNK, DOSAGE 1: UNIT=NOT AVAILABLE
     Route: 065
  3. ADALIMUMAB [Suspect]
     Active Substance: ADALIMUMAB
     Dosage: UNK (DOSAGE TEXT: UNK 9 DOSAGE 1)/ UNK 9 (DOSAGE 1: UNIT=SURECLICK)
     Route: 058
  4. LETROZOLE [Suspect]
     Active Substance: LETROZOLE
     Indication: Breast cancer
     Dosage: 2.5 MILLIGRAM, QD ((CUMULATIVE DOSE TO FIRST REACTION: 98 MG)
     Route: 048
     Dates: start: 20240221, end: 20240430
  5. LETROZOLE [Suspect]
     Active Substance: LETROZOLE
     Indication: Breast cancer female
  6. SECUKINUMAB [Suspect]
     Active Substance: SECUKINUMAB
     Indication: Product used for unknown indication
     Dosage: 98 MILLIGRAM
     Route: 058
  7. SECUKINUMAB [Suspect]
     Active Substance: SECUKINUMAB
     Dosage: UNK
     Route: 058
  8. SECUKINUMAB [Suspect]
     Active Substance: SECUKINUMAB
     Dosage: 195 MILLIGRAM
     Route: 058
  9. SECUKINUMAB [Suspect]
     Active Substance: SECUKINUMAB
     Dosage: 90 MILLIGRAM
     Route: 065
  10. SECUKINUMAB [Suspect]
     Active Substance: SECUKINUMAB
     Dosage: UNK
     Route: 065
  11. PALBOCICLIB [Suspect]
     Active Substance: PALBOCICLIB
     Indication: Breast cancer
     Dosage: 125 MILLIGRAM, QD (CYCLIC (DAILY FROM DAY 1 TO DAY 21 EVERY 28-DAY CYCLE)
     Route: 048
     Dates: start: 20240221, end: 20240423
  12. PALBOCICLIB [Suspect]
     Active Substance: PALBOCICLIB
     Indication: Breast cancer female
  13. EDOXABAN TOSYLATE [Concomitant]
     Active Substance: EDOXABAN TOSYLATE
     Indication: Product used for unknown indication
     Dosage: UNK
     Route: 048
     Dates: start: 202401, end: 202401
  14. EDOXABAN TOSYLATE [Concomitant]
     Active Substance: EDOXABAN TOSYLATE
     Dosage: UNK
     Route: 065
     Dates: start: 202401, end: 202401
  15. EDOXABAN TOSYLATE [Concomitant]
     Active Substance: EDOXABAN TOSYLATE
     Dosage: UNK
     Route: 065
     Dates: start: 202401
  16. EDOXABAN TOSYLATE [Concomitant]
     Active Substance: EDOXABAN TOSYLATE
     Dosage: UNK
     Route: 048
     Dates: start: 202401

REACTIONS (5)
  - Anaemia [Recovered/Resolved]
  - Metastases to bone [Unknown]
  - Neoplasm progression [Unknown]
  - White blood cell count decreased [Unknown]
  - Systemic lupus erythematosus [Unknown]

NARRATIVE: CASE EVENT DATE: 20240330
